FAERS Safety Report 8519648-8 (Version None)
Quarter: 2012Q3

REPORT INFORMATION
  Report Type: 
  Country: None (occurrence: None)
  Receive Date: 20120719
  Receipt Date: 20120716
  Transmission Date: 20120928
  Serious: Yes (Life-Threatening)
  Sender: FDA-Public Use
  Company Number: US-AMGEN-USASP2012044084

PATIENT
  Age: 52 Year
  Sex: Female
  Weight: 52 kg

DRUGS (4)
  1. NEULASTA [Suspect]
     Indication: NEUTROPENIA
     Dosage: 6 MG, ONE TIME DOSE
     Route: 058
     Dates: start: 20120304, end: 20120304
  2. ADRIAMYCIN                         /00330902/ [Concomitant]
     Dosage: 50 MG, Q3WK
     Route: 042
     Dates: start: 20120302
  3. CYCLOPHOSPHAMIDE [Concomitant]
     Dosage: 600 MG, UNK
     Route: 042
     Dates: start: 20120302
  4. NEULASTA [Suspect]
     Indication: CHEMOTHERAPY

REACTIONS (2)
  - FEBRILE NEUTROPENIA [None]
  - SEPTIC SHOCK [None]
